FAERS Safety Report 11223908 (Version 1)
Quarter: 2015Q2

REPORT INFORMATION
  Report Type: Spontaneous
  Country: US (occurrence: US)
  Receive Date: 20150629
  Receipt Date: 20150629
  Transmission Date: 20150821
  Serious: Yes (Other)
  Sender: FDA-Public Use
  Company Number: US-ASTRAZENECA-2015SE62915

PATIENT
  Age: 55 Year
  Sex: Male

DRUGS (3)
  1. SUBOXONE [Concomitant]
     Active Substance: BUPRENORPHINE HYDROCHLORIDE\NALOXONE HYDROCHLORIDE
     Indication: MUSCLE SPASMS
  2. VIMOVO [Suspect]
     Active Substance: ESOMEPRAZOLE MAGNESIUM\NAPROXEN
     Indication: BACK PAIN
     Dosage: 1 TABLET TWICE DAILY AS NEEDED
     Route: 048
  3. TIZANIDINE (TIZANIDINE) [Concomitant]
     Active Substance: TIZANIDINE
     Indication: MUSCLE SPASMS

REACTIONS (5)
  - Anaphylactic reaction [Recovered/Resolved]
  - Erythema [Unknown]
  - Dyspnoea [Unknown]
  - Rash [Unknown]
  - Throat tightness [Unknown]
